FAERS Safety Report 24150216 (Version 2)
Quarter: 2025Q2

REPORT INFORMATION
  Report Type: Other
  Country: CH (occurrence: CH)
  Receive Date: 20240730
  Receipt Date: 20250604
  Transmission Date: 20250717
  Serious: Yes (Other)
  Sender: APPCO PHARMA LLC
  Company Number: CH-Appco Pharma LLC-2159756

PATIENT
  Age: 52 Year
  Sex: Female

DRUGS (4)
  1. VENLAFAXINE [Suspect]
     Active Substance: VENLAFAXINE HYDROCHLORIDE
     Indication: Migraine
  2. ESTROGENS [Concomitant]
     Active Substance: ESTROGENS
  3. FREMANEZUMAB [Concomitant]
     Active Substance: FREMANEZUMAB
  4. PROGESTERONE [Concomitant]
     Active Substance: PROGESTERONE

REACTIONS (4)
  - Hypertension [Recovered/Resolved]
  - Left ventricular hypertrophy [Recovered/Resolved]
  - Global longitudinal strain abnormal [Recovered/Resolved]
  - Hypertrophic cardiomyopathy [Recovered/Resolved]

NARRATIVE: CASE EVENT DATE: 20210701
